FAERS Safety Report 12708485 (Version 3)
Quarter: 2018Q2

REPORT INFORMATION
  Report Type: Report from Study
  Country: KR (occurrence: KR)
  Receive Date: 20160901
  Receipt Date: 20180425
  Transmission Date: 20180711
  Serious: Yes (Hospitalization)
  Sender: FDA-Public Use
  Company Number: KR-GLAXOSMITHKLINE-KR2016GSK124768

PATIENT
  Age: 74 Year
  Sex: Male
  Weight: 65 kg

DRUGS (3)
  1. CRAVIT [Concomitant]
     Active Substance: LEVOFLOXACIN
     Indication: PROSTATE CANCER
     Dosage: 500 MG, QD
     Route: 048
     Dates: start: 20160427
  2. IMIPRAMINE [Concomitant]
     Active Substance: IMIPRAMINE
     Indication: PROSTATE CANCER
     Dosage: 25 MG, BID
     Route: 048
     Dates: start: 20160427
  3. UMECLIDINIUM BR+VILANTEROL TRIFENATATE [Suspect]
     Active Substance: UMECLIDINIUM BROMIDE\VILANTEROL TRIFENATATE
     Indication: CHRONIC OBSTRUCTIVE PULMONARY DISEASE
     Dosage: 25 UG, QD
     Route: 055
     Dates: start: 20160517

REACTIONS (1)
  - Ureterolithiasis [Recovered/Resolved]

NARRATIVE: CASE EVENT DATE: 20160820
